FAERS Safety Report 7952716 (Version 3)
Quarter: 2012Q4

REPORT INFORMATION
  Report Type: 
  Country: US (occurrence: US)
  Receive Date: 20110519
  Receipt Date: 20120912
  Transmission Date: 20130627
  Serious: Yes (Hospitalization)
  Sender: FDA-Public Use
  Company Number: US-BAYER-2011-042818

PATIENT
  Age: 22 Year
  Sex: Female
  Weight: 100 kg

DRUGS (13)
  1. YAZ [Suspect]
     Indication: CONTRACEPTION
     Dosage: UNK
     Dates: start: 20081213, end: 2010
  2. ALBUTEROL [Concomitant]
     Indication: ASTHMA
  3. SOMA [Concomitant]
     Dosage: 250 mg, QID
     Route: 048
  4. ZOFRAN [Concomitant]
     Indication: NAUSEA
     Dosage: 4 mg, PRN
     Route: 048
  5. IMITREX [Concomitant]
     Dosage: 100 mg, UNK
  6. ASMANEX [Concomitant]
     Dosage: UNK
     Dates: start: 2008
  7. PROZAC [Concomitant]
     Indication: DEPRESSION
     Dosage: 20 mg, QD
     Route: 048
     Dates: start: 200712, end: 201007
  8. ADVIL [Concomitant]
  9. VITAMIN C [ASCORBIC ACID] [Concomitant]
  10. SINGULAIR [Concomitant]
     Dosage: UNK UNK, QD
  11. VITAMIN D [COLECALCIFEROL] [Concomitant]
  12. LOMOTIL [Concomitant]
     Indication: DIARRHOEA
     Dosage: 0.025-2.5 mg 2 tabs QID as needed
     Route: 048
  13. TORADOL [Concomitant]
     Dosage: 60 mg, UNK

REACTIONS (9)
  - Deep vein thrombosis [Recovered/Resolved]
  - Pelvic venous thrombosis [Recovered/Resolved]
  - Vena cava thrombosis [Recovered/Resolved]
  - Oedema peripheral [Recovered/Resolved]
  - Pain in extremity [Recovered/Resolved]
  - Injury [None]
  - Pain [None]
  - Emotional distress [None]
  - Anxiety [None]
